FAERS Safety Report 10395495 (Version 1)
Quarter: 2014Q3

REPORT INFORMATION
  Report Type: Spontaneous
  Country: DE (occurrence: DE)
  Receive Date: 20140820
  Receipt Date: 20140820
  Transmission Date: 20150326
  Serious: Yes (Hospitalization)
  Sender: FDA-Public Use
  Company Number: DE-MYLAN-2014M1001754

PATIENT

DRUGS (17)
  1. PANTOPRAZOLE [Concomitant]
     Active Substance: PANTOPRAZOLE SODIUM
     Dosage: 40 MG/DAY
     Route: 065
     Dates: start: 201202
  2. SODIUM VALPROATE [Interacting]
     Active Substance: VALPROATE SODIUM
     Dosage: 600 MG/DAY
     Route: 065
     Dates: start: 201202
  3. FLUPENTIXOL [Concomitant]
     Active Substance: FLUPENTIXOL
     Route: 065
  4. AMISULPRIDE [Concomitant]
     Active Substance: AMISULPRIDE
     Route: 065
     Dates: start: 2006
  5. TAMSULOSIN [Concomitant]
     Active Substance: TAMSULOSIN
     Dosage: 0.4 MG/DAY
     Route: 065
     Dates: start: 201202
  6. LORAZEPAM. [Interacting]
     Active Substance: LORAZEPAM
     Dosage: UPTO 3.5 MG/DAY
     Route: 065
     Dates: start: 201202
  7. TORASEMIDE [Interacting]
     Active Substance: TORSEMIDE
     Dosage: 20 MG/DAY
     Route: 065
     Dates: start: 201202
  8. ASPIRIN. [Concomitant]
     Active Substance: ASPIRIN
     Dosage: 100 MG/DAY
     Route: 065
     Dates: start: 201202
  9. LEVOTHYROXINE SODIUM. [Concomitant]
     Active Substance: LEVOTHYROXINE SODIUM
     Indication: HYPOTHYROIDISM
     Dosage: 50 MICROGM/DAY
     Route: 065
     Dates: start: 201202
  10. BROMPERIDOL [Concomitant]
     Active Substance: BROMPERIDOL
     Route: 065
  11. METOPROLOL [Interacting]
     Active Substance: METOPROLOL
     Indication: HYPERTENSION
     Dosage: 100 MG/DAY
     Route: 065
     Dates: start: 201202
  12. ZIPRASIDONE [Concomitant]
     Active Substance: ZIPRASIDONE
     Route: 065
  13. QUETIAPINE [Interacting]
     Active Substance: QUETIAPINE
     Dosage: 800 MG/DAY
     Route: 065
     Dates: start: 201202
  14. OLANZAPINE. [Concomitant]
     Active Substance: OLANZAPINE
     Route: 065
  15. SIMVASTATIN. [Concomitant]
     Active Substance: SIMVASTATIN
     Indication: HYPERLIPIDAEMIA
     Dosage: 20 MG/DAY
     Route: 065
     Dates: start: 201202
  16. NORTRIPTYLINE [Suspect]
     Active Substance: NORTRIPTYLINE
     Dosage: 75 MG/DAY
     Route: 065
     Dates: start: 201202
  17. RAMIPRIL. [Concomitant]
     Active Substance: RAMIPRIL
     Dosage: 10 MG/DAY
     Route: 065
     Dates: start: 201202

REACTIONS (8)
  - Drug interaction [Recovering/Resolving]
  - Fall [None]
  - Altered state of consciousness [Recovering/Resolving]
  - Increased appetite [None]
  - Sedation [Recovering/Resolving]
  - Inappropriate antidiuretic hormone secretion [Unknown]
  - Skull fracture [None]
  - Hyponatraemia [None]
